FAERS Safety Report 4547439-1 (Version None)
Quarter: 2005Q1

REPORT INFORMATION
  Report Type: 
  Country: None (occurrence: None)
  Receive Date: 20050107
  Receipt Date: 20041119
  Transmission Date: 20050727
  Serious: Yes (Other)
  Sender: FDA-Public Use
  Company Number: US-GLAXOSMITHKLINE-A0535436A

PATIENT
  Age: 14 Year
  Sex: Male

DRUGS (4)
  1. PAXIL [Suspect]
     Indication: DEPRESSION
     Dates: start: 20030225
  2. CONCERTA [Concomitant]
     Indication: DRUG USE FOR UNKNOWN INDICATION
     Dosage: 36MG TWICE PER DAY
  3. ALLEGRA [Concomitant]
     Indication: RHINITIS ALLERGIC
  4. ALCOHOL [Concomitant]

REACTIONS (3)
  - AGGRESSION [None]
  - INJURY [None]
  - SUICIDE ATTEMPT [None]
